FAERS Safety Report 18462322 (Version 1)
Quarter: 2020Q4

REPORT INFORMATION
  Report Type: Spontaneous
  Country: US (occurrence: US)
  Receive Date: 20201103
  Receipt Date: 20201103
  Transmission Date: 20210114
  Serious: No
  Sender: FDA-Public Use
  Company Number: None

PATIENT
  Age: 62 Year
  Sex: Male
  Weight: 62.7 kg

DRUGS (12)
  1. ASPIRIN 81 MG [Concomitant]
     Active Substance: ASPIRIN
     Dates: start: 20200801, end: 20200812
  2. PRAVASTATIN 20 MG [Concomitant]
     Active Substance: PRAVASTATIN
     Dates: start: 20200801, end: 20200812
  3. HEPARIN [Concomitant]
     Active Substance: HEPARIN SODIUM
     Dates: start: 20200727, end: 20200803
  4. TACROLIMUS. [Suspect]
     Active Substance: TACROLIMUS
     Indication: PROPHYLAXIS AGAINST TRANSPLANT REJECTION
     Route: 048
     Dates: start: 20200726
  5. VALGANCICLOVIR 450 MG [Concomitant]
     Dates: start: 20200731, end: 20200803
  6. MYCOPHENOLATE MOFETIL 1500 MG [Concomitant]
     Dates: start: 20200729, end: 20200812
  7. SENNA-DOCUSATE 8.6-50 MG [Concomitant]
     Dates: start: 20200725, end: 20200808
  8. TACROLIMUS. [Suspect]
     Active Substance: TACROLIMUS
     Indication: PROPHYLAXIS AGAINST TRANSPLANT REJECTION
     Route: 048
     Dates: start: 20200726
  9. TERBUTALINE 5 MG [Concomitant]
     Active Substance: TERBUTALINE SULFATE
     Dates: start: 20200801, end: 20200806
  10. VANCOMYCIN 1000 MG [Concomitant]
     Active Substance: VANCOMYCIN
     Dates: start: 20200801, end: 20200805
  11. FAMOTIDINE 20 MG [Concomitant]
     Active Substance: FAMOTIDINE
     Dates: start: 20200731, end: 20200812
  12. PREDNISONE 20 MG [Concomitant]
     Active Substance: PREDNISONE
     Dates: start: 20200802, end: 20200804

REACTIONS (2)
  - Therapeutic product effect delayed [None]
  - Heart transplant rejection [None]

NARRATIVE: CASE EVENT DATE: 20200802
